FAERS Safety Report 17868139 (Version 2)
Quarter: 2020Q2

REPORT INFORMATION
  Report Type: Not Available
  Country: US (occurrence: US)
  Receive Date: 20200605
  Receipt Date: 20200619
  Transmission Date: 20200714
  Serious: Yes (Life-Threatening, Hospitalization)
  Sender: FDA-Public Use
  Company Number: US-NEUROCRINE BIOSCIENCES INC.-2020NBI01831

PATIENT
  Age: 56 Year
  Sex: Male

DRUGS (2)
  1. INGREZZA [Suspect]
     Active Substance: VALBENAZINE
     Indication: TARDIVE DYSKINESIA
     Route: 048
     Dates: start: 20191029, end: 20191105
  2. INGREZZA [Suspect]
     Active Substance: VALBENAZINE
     Route: 048
     Dates: start: 20191106, end: 202005

REACTIONS (4)
  - Lip injury [Not Recovered/Not Resolved]
  - Multiple fractures [Not Recovered/Not Resolved]
  - Skin laceration [Not Recovered/Not Resolved]
  - Road traffic accident [Recovered/Resolved]

NARRATIVE: CASE EVENT DATE: 202005
